FAERS Safety Report 13753882 (Version 2)
Quarter: 2018Q1

REPORT INFORMATION
  Report Type: Report from Study
  Country: JP (occurrence: JP)
  Receive Date: 20170714
  Receipt Date: 20180118
  Transmission Date: 20180508
  Serious: Yes (Hospitalization)
  Sender: FDA-Public Use
  Company Number: JP-OTSUKA-2017_015119

PATIENT
  Age: 81 Year
  Sex: Male
  Weight: 46.3 kg

DRUGS (7)
  1. BONALFA [Concomitant]
     Indication: DERMATITIS ALLERGIC
     Dosage: QS, UNK
     Route: 061
     Dates: start: 20170301, end: 201710
  2. VOALLA [Concomitant]
     Indication: DERMATITIS ALLERGIC
     Dosage: QS, UNK
     Route: 061
     Dates: end: 201710
  3. ALESION [Concomitant]
     Active Substance: EPINASTINE HYDROCHLORIDE
     Indication: DERMATITIS ALLERGIC
     Dosage: 20 MG, PRN
     Route: 048
     Dates: end: 201710
  4. HIRUDOID [Concomitant]
     Active Substance: GLYCOSAMINOGLYCANS
     Indication: DERMATITIS ALLERGIC
     Dosage: QS, UNK
     Route: 061
     Dates: end: 201710
  5. NERISONA [Concomitant]
     Active Substance: DIFLUCORTOLONE VALERATE
     Indication: DERMATITIS ALLERGIC
     Dosage: QS, UNK
     Route: 061
     Dates: start: 20170327, end: 201710
  6. BLINDED CILOSTAZOL [Suspect]
     Active Substance: CILOSTAZOL
     Indication: COGNITIVE DISORDER
     Dosage: UNK
     Route: 048
     Dates: start: 20170124, end: 20180105
  7. BLINDED PLACEBO [Suspect]
     Active Substance: INVESTIGATIONAL PRODUCT
     Indication: COGNITIVE DISORDER
     Dosage: UNK
     Route: 048
     Dates: start: 20170124, end: 20180105

REACTIONS (1)
  - Spinal compression fracture [Recovered/Resolved]

NARRATIVE: CASE EVENT DATE: 20170627
